FAERS Safety Report 8820072 (Version 1)
Quarter: 2012Q4

REPORT INFORMATION
  Report Type: 
  Country: US (occurrence: US)
  Receive Date: 20121001
  Receipt Date: 20121001
  Transmission Date: 20130627
  Serious: No
  Sender: FDA-Public Use
  Company Number: US-009507513-1208USA000048

PATIENT
  Sex: Female
  Weight: 65.76 kg

DRUGS (3)
  1. MIRALAX [Suspect]
     Indication: GASTROINTESTINAL MOTILITY DISORDER
     Dosage: 17 g, qd
     Route: 048
     Dates: start: 201206
  2. MIRALAX [Suspect]
     Indication: MEDICAL OBSERVATION
  3. MAXALT [Concomitant]
     Indication: MIGRAINE
     Dosage: UNK, Unknown

REACTIONS (1)
  - Therapeutic product ineffective [Unknown]
